FAERS Safety Report 16907757 (Version 1)
Quarter: 2019Q4

REPORT INFORMATION
  Report Type: Spontaneous
  Country: US (occurrence: US)
  Receive Date: 20190820
  Receipt Date: 20190820
  Transmission Date: 20200122
  Serious: No
  Sender: FDA-Public Use
  Company Number: None

PATIENT
  Sex: Female

DRUGS (1)
  1. HUMIRA [Suspect]
     Active Substance: ADALIMUMAB
     Indication: POLYARTHRITIS
     Route: 058
     Dates: start: 201902, end: 201903

REACTIONS (8)
  - Pneumonia [None]
  - Atrioventricular block [None]
  - Haemoglobin decreased [None]
  - Quality of life decreased [None]
  - Malaise [None]
  - Bone marrow failure [None]
  - Immune system disorder [None]
  - Continuous haemodiafiltration [None]
